FAERS Safety Report 9042902 (Version 2)
Quarter: 2013Q1

REPORT INFORMATION
  Report Type: Report from Study
  Country: DE (occurrence: DE)
  Receive Date: 20130129
  Receipt Date: 20130210
  Transmission Date: 20140127
  Serious: Yes (Other)
  Sender: FDA-Public Use
  Company Number: DE-UCBSA-076903

PATIENT
  Sex: Female

DRUGS (5)
  1. LEVETIRACETAM [Suspect]
     Indication: EPILEPSY
     Dates: start: 20050525
  2. CLOBAZAM [Suspect]
     Indication: EPILEPSY
     Dates: start: 20050525
  3. VALPROIC ACID [Suspect]
     Indication: EPILEPSY
     Dates: start: 20011231
  4. VALPROIC ACID [Suspect]
     Indication: EPILEPSY
     Dosage: DAILY DOSE: 1500 MG, MAXIMUM SINGLE DOSE: 1000 MG
     Dates: start: 2005
  5. LAMOTRIGINE [Concomitant]
     Indication: EPILEPSY
     Dosage: MAXIMAUM SINGLE DOSE: 200 MG.TOTAL DAILY DOSE : 350 MG
     Dates: start: 20031231, end: 20050622

REACTIONS (4)
  - Premature delivery [Unknown]
  - Pregnancy on contraceptive [Unknown]
  - Pregnancy with contraceptive device [Unknown]
  - Pregnancy [Recovered/Resolved]
